FAERS Safety Report 6507346-1 (Version None)
Quarter: 2009Q4

REPORT INFORMATION
  Report Type: 
  Country: None (occurrence: None)
  Receive Date: 20091221
  Receipt Date: 20091210
  Transmission Date: 20100525
  Serious: Yes (Death)
  Sender: FDA-Public Use
  Company Number: AU-BAXTER-2009BH019281

PATIENT
  Age: 40 Year
  Sex: Male

DRUGS (20)
  1. HOLOXAN BAXTER [Suspect]
     Indication: TRANSITIONAL CELL CARCINOMA
     Route: 065
     Dates: start: 20040831, end: 20040831
  2. HOLOXAN BAXTER [Suspect]
     Route: 065
     Dates: start: 20040917, end: 20040917
  3. HOLOXAN BAXTER [Suspect]
     Route: 065
     Dates: start: 20041015, end: 20041015
  4. RITUXIMAB [Suspect]
     Indication: TRANSITIONAL CELL CARCINOMA
     Route: 065
     Dates: start: 20040828, end: 20040828
  5. RITUXIMAB [Suspect]
     Route: 065
     Dates: start: 20040830, end: 20040830
  6. RITUXIMAB [Suspect]
     Route: 065
     Dates: start: 20040916, end: 20040916
  7. RITUXIMAB [Suspect]
     Route: 065
     Dates: start: 20041014, end: 20041014
  8. ETOPOSIDE [Suspect]
     Indication: TRANSITIONAL CELL CARCINOMA
     Route: 065
     Dates: start: 20040830, end: 20040901
  9. ETOPOSIDE [Suspect]
     Route: 065
     Dates: start: 20040916, end: 20040918
  10. ETOPOSIDE [Suspect]
     Route: 065
     Dates: start: 20041014, end: 20041016
  11. ETOPOSIDE [Suspect]
     Route: 065
     Dates: start: 20041117
  12. CARBOPLATIN [Suspect]
     Indication: TRANSITIONAL CELL CARCINOMA
     Route: 065
     Dates: start: 20040831, end: 20040831
  13. CARBOPLATIN [Suspect]
     Route: 065
     Dates: start: 20040917, end: 20040917
  14. CARBOPLATIN [Suspect]
     Route: 065
     Dates: start: 20041015, end: 20041015
  15. NEUPOGEN [Suspect]
     Indication: TRANSITIONAL CELL CARCINOMA
     Route: 065
     Dates: start: 20040921, end: 20040921
  16. NEUPOGEN [Suspect]
     Route: 065
     Dates: start: 20040904, end: 20040904
  17. NEUPOGEN [Suspect]
     Route: 065
     Dates: start: 20041019, end: 20041026
  18. CARMUSTINE [Suspect]
     Indication: TRANSITIONAL CELL CARCINOMA
     Route: 065
     Dates: start: 20041117
  19. CYTARABINE [Suspect]
     Indication: TRANSITIONAL CELL CARCINOMA
     Route: 065
     Dates: start: 20041117
  20. MELPHALAN [Suspect]
     Indication: TRANSITIONAL CELL CARCINOMA
     Route: 065
     Dates: start: 20041117

REACTIONS (1)
  - TRANSITIONAL CELL CARCINOMA [None]
